FAERS Safety Report 26080776 (Version 1)
Quarter: 2025Q4

REPORT INFORMATION
  Report Type: Spontaneous
  Country: US (occurrence: US)
  Receive Date: 20251124
  Receipt Date: 20251124
  Transmission Date: 20260118
  Serious: No
  Sender: HIKMA
  Company Number: US-HIKMA PHARMACEUTICALS USA INC.-US-H14001-25-10159

PATIENT
  Sex: Female

DRUGS (11)
  1. AMIKACIN [Suspect]
     Active Substance: AMIKACIN
     Indication: Bronchiectasis
     Dosage: UNKNOWN
     Route: 065
  2. AMIKACIN [Suspect]
     Active Substance: AMIKACIN
     Indication: Mycobacterium avium complex infection
  3. AMIKACIN [Suspect]
     Active Substance: AMIKACIN
     Indication: Pseudomonas infection
  4. CAYSTON [Suspect]
     Active Substance: AZTREONAM
     Indication: Pseudomonas infection
     Dosage: UNKNOWN
     Route: 065
  5. CEFTAZIDIME [Suspect]
     Active Substance: CEFTAZIDIME
     Indication: Pseudomonas infection
     Dosage: UNKNOWN
  6. COLISTIN [Suspect]
     Active Substance: COLISTIN
     Indication: Pseudomonas infection
     Dosage: UNKNOWN
  7. ETHAMBUTOL [Suspect]
     Active Substance: ETHAMBUTOL HYDROCHLORIDE
     Indication: Mycobacterium avium complex infection
     Dosage: UNKNOWN
  8. ETHAMBUTOL [Suspect]
     Active Substance: ETHAMBUTOL HYDROCHLORIDE
     Indication: Bronchiectasis
  9. RIFAMPIN [Suspect]
     Active Substance: RIFAMPIN
     Indication: Mycobacterium avium complex infection
     Dosage: UNKNOWN
  10. RIFAMPIN [Suspect]
     Active Substance: RIFAMPIN
     Indication: Bronchiectasis
  11. TOBRAMYCIN [Suspect]
     Active Substance: TOBRAMYCIN
     Indication: Pseudomonas infection
     Dosage: UNKNOWN

REACTIONS (10)
  - Bronchiectasis [Unknown]
  - Condition aggravated [Unknown]
  - Drug intolerance [Unknown]
  - Dyspnoea [Unknown]
  - Productive cough [Unknown]
  - Decreased appetite [Unknown]
  - Pyrexia [Unknown]
  - Chills [Unknown]
  - Night sweats [Unknown]
  - Fatigue [Unknown]

NARRATIVE: CASE EVENT DATE: 20030101
